FAERS Safety Report 8589302 (Version 4)
Quarter: 2014Q1

REPORT INFORMATION
  Report Type: Report from Study
  Country: US (occurrence: US)
  Receive Date: 20120531
  Receipt Date: 20140211
  Transmission Date: 20141002
  Serious: Yes (Hospitalization, Other)
  Sender: FDA-Public Use
  Company Number: US-ACTELION-A-NJ2012-66205

PATIENT
  Age: 80 Year
  Sex: Female

DRUGS (3)
  1. TRACLEER [Suspect]
     Indication: PULMONARY ARTERIAL HYPERTENSION
     Dosage: UNK
     Route: 048
     Dates: start: 20080123
  2. DIGOXIN [Suspect]
  3. SILDENAFIL [Concomitant]
     Indication: PULMONARY ARTERIAL HYPERTENSION

REACTIONS (8)
  - Stress cardiomyopathy [Unknown]
  - Loss of consciousness [Unknown]
  - Dyspnoea [Unknown]
  - Intestinal haemorrhage [Not Recovered/Not Resolved]
  - Blood count abnormal [Not Recovered/Not Resolved]
  - Toxicity to various agents [Unknown]
  - Intestinal obstruction [Recovering/Resolving]
  - Cardiac failure [Recovering/Resolving]
